FAERS Safety Report 6253214-2 (Version None)
Quarter: 2009Q2

REPORT INFORMATION
  Report Type: 
  Country: None (occurrence: None)
  Receive Date: 20090629
  Receipt Date: 20090629
  Transmission Date: 20091009
  Serious: Yes (Hospitalization)
  Sender: FDA-Public Use
  Company Number: None

PATIENT
  Age: 76 Year
  Sex: Female
  Weight: 97.5234 kg

DRUGS (1)
  1. METOPROLOL TARTRATE [Suspect]

REACTIONS (5)
  - DIZZINESS [None]
  - FATIGUE [None]
  - NIGHTMARE [None]
  - PAIN [None]
  - PAIN IN EXTREMITY [None]
